FAERS Safety Report 25630402 (Version 3)
Quarter: 2025Q3

REPORT INFORMATION
  Report Type: Spontaneous
  Country: EU (occurrence: EU)
  Receive Date: 20250801
  Receipt Date: 20250814
  Transmission Date: 20251021
  Serious: Yes (Disabling)
  Sender: ABBVIE
  Company Number: None

PATIENT
  Age: 65 Year
  Sex: Male
  Weight: 91 kg

DRUGS (5)
  1. ADALIMUMAB [Suspect]
     Active Substance: ADALIMUMAB
     Indication: Ankylosing spondylitis
     Dosage: DOSE FORM-SOLUTION FOR INJECTION IN PRE-FILLED SYRINGE?1 INJECTION EVERY 14 DAYS. TWO DIFFERENT B...
     Route: 058
     Dates: start: 20250203, end: 20250717
  2. ADALIMUMAB [Suspect]
     Active Substance: ADALIMUMAB
     Dosage: DOSE FORM-SOLUTION FOR INJECTION IN PRE-FILLED SYRINGE|?1 INJECTION EVERY 14 DAYS. TWO DIFFERENT ...
     Route: 058
  3. ADALIMUMAB [Suspect]
     Active Substance: ADALIMUMAB
     Route: 058
     Dates: start: 2015
  4. HYRIMOZ [Suspect]
     Active Substance: ADALIMUMAB-ADAZ
     Indication: Ankylosing spondylitis
     Dosage: 1 INJECTION EVERY 14 DAYS. TWO DIFFERENT BATCHES WERE ADMINISTERED: PJ4497 AND PF2660; 100MG/ML
     Route: 058
     Dates: start: 20250203, end: 20250717
  5. HYRIMOZ [Suspect]
     Active Substance: ADALIMUMAB-ADAZ
     Indication: Ankylosing spondylitis
     Dosage: 1 INJECTION EVERY 14 DAYS. TWO DIFFERENT BATCHES WERE ADMINISTERED: PJ4497 AND PF2660; 100MG/ML
     Route: 058

REACTIONS (4)
  - Therapeutic product effect incomplete [Not Recovered/Not Resolved]
  - Back pain [Not Recovered/Not Resolved]
  - Musculoskeletal stiffness [Unknown]
  - Product substitution issue [Not Recovered/Not Resolved]

NARRATIVE: CASE EVENT DATE: 20250203
